FAERS Safety Report 8369404-9 (Version None)
Quarter: 2012Q2

REPORT INFORMATION
  Report Type: 
  Country: None (occurrence: None)
  Receive Date: 20120516
  Receipt Date: 20120516
  Transmission Date: 20120825
  Serious: Yes (Other)
  Sender: FDA-Public Use
  Company Number: None

PATIENT
  Age: 10 Year
  Sex: Male
  Weight: 47.6277 kg

DRUGS (1)
  1. SINGULAIR [Suspect]
     Indication: HYPERSENSITIVITY
     Dosage: 5MG 1 DAILY PO
     Route: 048
     Dates: start: 20060912, end: 20120426

REACTIONS (7)
  - ANXIETY [None]
  - CONFUSIONAL STATE [None]
  - INSOMNIA [None]
  - DEPRESSION [None]
  - SOMNAMBULISM [None]
  - HALLUCINATION [None]
  - ABNORMAL DREAMS [None]
